FAERS Safety Report 20725470 (Version 3)
Quarter: 2022Q2

REPORT INFORMATION
  Report Type: Spontaneous
  Country: US (occurrence: None)
  Receive Date: 20220419
  Receipt Date: 20220525
  Transmission Date: 20220721
  Serious: Yes (Other)
  Sender: FDA-Public Use
  Company Number: 2022A143851

PATIENT
  Age: 918 Month
  Sex: Female
  Weight: 88.5 kg

DRUGS (1)
  1. SYMBICORT [Suspect]
     Active Substance: BUDESONIDE\FORMOTEROL FUMARATE DIHYDRATE
     Indication: Chronic obstructive pulmonary disease
     Dosage: TWO PUFFS TWICE EACH DAY
     Route: 055
     Dates: start: 2019

REACTIONS (6)
  - Cardiac disorder [Recovered/Resolved]
  - Dyspnoea [Not Recovered/Not Resolved]
  - Device use issue [Not Recovered/Not Resolved]
  - Intentional product misuse [Unknown]
  - Wrong technique in device usage process [Unknown]
  - Device malfunction [Unknown]

NARRATIVE: CASE EVENT DATE: 20211101
